FAERS Safety Report 6758443-7 (Version None)
Quarter: 2010Q2

REPORT INFORMATION
  Report Type: 
  Country: None (occurrence: None)
  Receive Date: 20100607
  Receipt Date: 20091002
  Transmission Date: 20101027
  Serious: Yes (Life-Threatening)
  Sender: FDA-Public Use
  Company Number: A0860704A

PATIENT
  Sex: Female
  Weight: 49 kg

DRUGS (2)
  1. LAPATINIB [Suspect]
     Indication: BREAST CANCER
     Dosage: 1000MG PER DAY
     Route: 048
     Dates: start: 20080225
  2. TRASTUZUMAB [Suspect]
     Indication: BREAST CANCER
     Dosage: 8MGK CYCLIC
     Route: 042
     Dates: start: 20080225

REACTIONS (4)
  - CARDIAC FAILURE CONGESTIVE [None]
  - COUGH [None]
  - DYSPNOEA [None]
  - FATIGUE [None]
